FAERS Safety Report 6150146-5 (Version None)
Quarter: 2009Q2

REPORT INFORMATION
  Report Type: 
  Country: None (occurrence: None)
  Receive Date: 20090407
  Receipt Date: 20090318
  Transmission Date: 20091009
  Serious: Yes (Hospitalization)
  Sender: FDA-Public Use
  Company Number: PVS1-18-MAR-2009

PATIENT
  Age: 28 Year
  Sex: Female
  Weight: 45 kg

DRUGS (1)
  1. SEROMYCIN [Suspect]
     Indication: PULMONARY TUBERCULOSIS
     Dosage: 750 MG, DAILY (1/D) ORAL
     Route: 048
     Dates: start: 20070917, end: 20071227

REACTIONS (2)
  - DELUSION [None]
  - PSYCHOTIC DISORDER [None]
